FAERS Safety Report 21761136 (Version 1)
Quarter: 2022Q4

REPORT INFORMATION
  Report Type: Spontaneous
  Country: IT (occurrence: IT)
  Receive Date: 20221221
  Receipt Date: 20221221
  Transmission Date: 20230113
  Serious: Yes (Death, Hospitalization, Other)
  Sender: FDA-Public Use
  Company Number: IT-009507513-2212ITA002727

PATIENT
  Age: 66 Year
  Sex: Male

DRUGS (4)
  1. AXITINIB [Suspect]
     Active Substance: AXITINIB
     Indication: Renal cancer
     Dosage: UNK, THE FIRST CYCLE
     Dates: start: 20220916, end: 20220916
  2. AXITINIB [Suspect]
     Active Substance: AXITINIB
     Dosage: UNK, THE SECOND CYCLE
     Dates: start: 20221007, end: 20221007
  3. PEMBROLIZUMAB [Suspect]
     Active Substance: PEMBROLIZUMAB
     Indication: Renal cancer
     Dosage: 200 MG, 200 MG, EVERY 21 DAYS (Q3W)
     Dates: start: 20220916, end: 20220916
  4. PEMBROLIZUMAB [Suspect]
     Active Substance: PEMBROLIZUMAB
     Dosage: 200 MG, EVERY 21 DAYS (Q3W), 2ND CYCLE
     Dates: start: 20221007, end: 20221007

REACTIONS (12)
  - Death [Fatal]
  - Hepatotoxicity [Not Recovered/Not Resolved]
  - Hepatotoxicity [Recovered/Resolved]
  - Pneumocystis jirovecii pneumonia [Not Recovered/Not Resolved]
  - Hypertension [Unknown]
  - Herpes simplex test positive [Unknown]
  - Cytomegalovirus test positive [Unknown]
  - Human rhinovirus test positive [Unknown]
  - Depressed mood [Unknown]
  - Scab [Unknown]
  - Hepatic steatosis [Unknown]
  - Infectious mononucleosis [Unknown]

NARRATIVE: CASE EVENT DATE: 20220101
